FAERS Safety Report 4589599-2 (Version None)
Quarter: 2005Q1

REPORT INFORMATION
  Report Type: 
  Country: None (occurrence: None)
  Receive Date: 20050223
  Receipt Date: 20050215
  Transmission Date: 20050727
  Serious: Yes (Disabling)
  Sender: FDA-Public Use
  Company Number: US-MERCK-0502USA02035

PATIENT
  Age: 56 Year
  Sex: Female

DRUGS (6)
  1. ZOCOR [Suspect]
     Indication: BLOOD CHOLESTEROL INCREASED
     Route: 048
     Dates: start: 20040801, end: 20040101
  2. DIOVAN [Concomitant]
     Route: 065
  3. [THERAPY UNSPECIFIED] [Concomitant]
     Route: 065
  4. PREDNISONE [Concomitant]
     Route: 065
  5. RANITIDINE [Concomitant]
     Route: 065
  6. HYDRODIURIL [Concomitant]
     Route: 048

REACTIONS (3)
  - ADVERSE EVENT [None]
  - HYPOKINESIA [None]
  - MYALGIA [None]
